FAERS Safety Report 5919523-9 (Version None)
Quarter: 2008Q4

REPORT INFORMATION
  Report Type: 
  Country: None (occurrence: None)
  Receive Date: 20081015
  Receipt Date: 20081013
  Transmission Date: 20090506
  Serious: Yes (Life-Threatening, Hospitalization)
  Sender: FDA-Public Use
  Company Number: HK-SANOFI-SYNTHELABO-F01200801582

PATIENT
  Sex: Female

DRUGS (5)
  1. PYRIDOXINE HYDROCHLORIDE [Concomitant]
     Dosage: UNK
     Dates: start: 20081006, end: 20081009
  2. NAPROSYN [Concomitant]
     Dosage: UNK
     Dates: start: 20081006, end: 20081009
  3. PEPCIDINE [Concomitant]
     Dosage: UNK
     Dates: start: 20081006, end: 20081010
  4. DOLOGESIC [Concomitant]
     Dosage: UNK
     Dates: start: 20081006, end: 20081009
  5. OXALIPLATIN [Suspect]
     Indication: NASOPHARYNGEAL CANCER
     Dosage: 160 MG
     Route: 041
     Dates: start: 20080929, end: 20080929

REACTIONS (1)
  - PANCYTOPENIA [None]
